FAERS Safety Report 9132739 (Version 1)
Quarter: 2013Q1

REPORT INFORMATION
  Report Type: Report from Study
  Country: BR (occurrence: BR)
  Receive Date: 20130301
  Receipt Date: 20130301
  Transmission Date: 20140127
  Serious: Yes (Other)
  Sender: FDA-Public Use
  Company Number: BR-ROCHE-1194884

PATIENT
  Sex: Female
  Weight: 54 kg

DRUGS (2)
  1. MABTHERA [Suspect]
     Indication: PRODUCT USED FOR UNKNOWN INDICATION
     Route: 042
     Dates: start: 20081101
  2. PREDNISONE [Concomitant]

REACTIONS (2)
  - Musculoskeletal disorder [Unknown]
  - Bunion [Not Recovered/Not Resolved]
